FAERS Safety Report 7724261-6 (Version None)
Quarter: 2011Q3

REPORT INFORMATION
  Report Type: 
  Country: None (occurrence: None)
  Receive Date: 20110829
  Receipt Date: 20110811
  Transmission Date: 20111222
  Serious: Yes (Life-Threatening, Hospitalization, Other)
  Sender: FDA-Public Use
  Company Number: 2011MA011684

PATIENT
  Age: 58 Year
  Sex: Female

DRUGS (4)
  1. LORAZEPAM [Suspect]
     Indication: SUICIDE ATTEMPT
     Dosage: 28 MG, X1
  2. SULPIRIDE (SULPIRIDE) [Suspect]
     Indication: SUICIDE ATTEMPT
     Dosage: 3100 MG, X1
  3. BUSPIRONE HCL [Suspect]
     Indication: SUICIDE ATTEMPT
     Dosage: 300 MG, X1
  4. DULOXETIME HYDROCHLORIDE [Suspect]
     Indication: SUICIDE ATTEMPT
     Dosage: 840 MG, X1

REACTIONS (12)
  - NYSTAGMUS [None]
  - GASTROINTESTINAL SOUNDS ABNORMAL [None]
  - COMA [None]
  - MYOCLONUS [None]
  - OESOPHAGEAL OBSTRUCTION [None]
  - INCORRECT DOSE ADMINISTERED [None]
  - OESOPHAGEAL ULCER [None]
  - HYPERREFLEXIA [None]
  - DYSPHAGIA [None]
  - HYPERHIDROSIS [None]
  - CHILLS [None]
  - BEZOAR [None]
